FAERS Safety Report 14794036 (Version 3)
Quarter: 2018Q3

REPORT INFORMATION
  Report Type: Spontaneous
  Country: CA (occurrence: CA)
  Receive Date: 20180423
  Receipt Date: 20180813
  Transmission Date: 20181010
  Serious: Yes (Other)
  Sender: FDA-Public Use
  Company Number: CA-CELLTRION INC.-2018CA017365

PATIENT

DRUGS (8)
  1. INFLECTRA [Suspect]
     Active Substance: INFLIXIMAB-DYYB
     Indication: CROHN^S DISEASE
     Dosage: 500 MG,CYCLIC (AT 0,2,6, WEEKS, THEN EVERY 8 WEEKS
     Route: 042
     Dates: start: 20180104
  2. INFLECTRA [Suspect]
     Active Substance: INFLIXIMAB-DYYB
     Dosage: 500 MG, CYCLIC (AT 0,2,6 WEEKS, THEN EVERY 8 WEEKS)
     Route: 042
     Dates: start: 20180118
  3. HYDROCORTISONE. [Concomitant]
     Active Substance: HYDROCORTISONE
     Dosage: UNK
     Dates: start: 20170104
  4. INFLECTRA [Suspect]
     Active Substance: INFLIXIMAB-DYYB
     Dosage: 600 MG, (EVERY 8  WEEKS)
     Route: 042
     Dates: start: 20180731
  5. INFLECTRA [Suspect]
     Active Substance: INFLIXIMAB-DYYB
     Dosage: 500 MG, CYCLIC (AT 0,2,6 WEEKS, THEN EVERY 8 WEEKS)
     Route: 042
     Dates: start: 20180412, end: 20180412
  6. INFLECTRA [Suspect]
     Active Substance: INFLIXIMAB-DYYB
     Dosage: 500 MG, CYCLIC (AT 0,2,6 WEEKS, THEN EVERY 8 WEEKS)
     Route: 042
     Dates: start: 20180215
  7. INFLECTRA [Suspect]
     Active Substance: INFLIXIMAB-DYYB
     Dosage: 600 MG, CYCLIC (EVERY 8  WEEKS)
     Route: 042
     Dates: start: 20180605
  8. INFLECTRA [Suspect]
     Active Substance: INFLIXIMAB-DYYB
     Dosage: 500 MG, CYCLIC (AT 0,2,6 WEEKS, THEN EVERY 8 WEEKS)
     Route: 042
     Dates: start: 20180104

REACTIONS (12)
  - Uveitis [Unknown]
  - Heart rate irregular [Unknown]
  - Nasopharyngitis [Unknown]
  - Drug effect incomplete [Unknown]
  - Arthralgia [Unknown]
  - Application site erythema [Recovered/Resolved]
  - Aphthous ulcer [Unknown]
  - Cough [Not Recovered/Not Resolved]
  - Pharyngeal erythema [Unknown]
  - Oropharyngeal pain [Unknown]
  - Blood pressure fluctuation [Unknown]
  - Malaise [Unknown]

NARRATIVE: CASE EVENT DATE: 20180104
